FAERS Safety Report 10473177 (Version 1)
Quarter: 2014Q3

REPORT INFORMATION
  Report Type: Spontaneous
  Country: US (occurrence: US)
  Receive Date: 20140924
  Receipt Date: 20140924
  Transmission Date: 20150326
  Serious: No
  Sender: FDA-Public Use
  Company Number: US-SA-2014SA128024

PATIENT
  Age: 54 Year
  Sex: Male
  Weight: 88.45 kg

DRUGS (5)
  1. MORPHINE [Concomitant]
     Active Substance: MORPHINE
  2. BACLOFEN. [Concomitant]
     Active Substance: BACLOFEN
  3. AUBAGIO [Suspect]
     Active Substance: TERIFLUNOMIDE
     Indication: MULTIPLE SCLEROSIS
     Route: 048
     Dates: start: 20140812
  4. VITAMIN D [Concomitant]
     Active Substance: CHOLECALCIFEROL
  5. METHADONE [Concomitant]
     Active Substance: METHADONE HYDROCHLORIDE

REACTIONS (3)
  - Amnesia [Unknown]
  - Somnambulism [Unknown]
  - Seborrhoea [Unknown]

NARRATIVE: CASE EVENT DATE: 20140821
